FAERS Safety Report 13225868 (Version 1)
Quarter: 2017Q1

REPORT INFORMATION
  Report Type: Spontaneous
  Country: None (occurrence: US)
  Receive Date: 20170211
  Receipt Date: 20170211
  Transmission Date: 20170428
  Serious: Yes (Disabling)
  Sender: FDA-Public Use
  Company Number: None

PATIENT
  Age: 1 Month
  Sex: Female

DRUGS (1)
  1. IV IBUPROFEN [Suspect]
     Active Substance: IBUPROFEN
     Indication: PATENT DUCTUS ARTERIOSUS REPAIR

REACTIONS (3)
  - Finger amputation [None]
  - Incorrect route of drug administration [None]
  - Necrosis [None]

NARRATIVE: CASE EVENT DATE: 20161214
